FAERS Safety Report 22223445 (Version 3)
Quarter: 2023Q2

REPORT INFORMATION
  Report Type: Report from Study
  Country: AU (occurrence: None)
  Receive Date: 20230418
  Receipt Date: 20230428
  Transmission Date: 20230722
  Serious: Yes (Other)
  Sender: FDA-Public Use
  Company Number: AU-Eisai Medical Research-EC-2023-137100

PATIENT
  Age: 81 Year
  Sex: Female
  Weight: 60 kg

DRUGS (2)
  1. DAYVIGO [Suspect]
     Active Substance: LEMBOREXANT
     Indication: Insomnia
     Route: 048
     Dates: start: 20221220, end: 20221223
  2. GABA [Concomitant]
     Active Substance: HOMEOPATHICS
     Dates: start: 2021

REACTIONS (1)
  - Sleep attacks [Recovered/Resolved]

NARRATIVE: CASE EVENT DATE: 20221223
